FAERS Safety Report 12443095 (Version 1)
Quarter: 2016Q2

REPORT INFORMATION
  Report Type: Spontaneous
  Country: US (occurrence: None)
  Receive Date: 20160606
  Receipt Date: 20160606
  Transmission Date: 20160815
  Serious: No
  Sender: FDA-Public Use
  Company Number: None

PATIENT
  Sex: Male

DRUGS (3)
  1. METFORMIN [Suspect]
     Active Substance: METFORMIN HYDROCHLORIDE
  2. CRESTOR [Suspect]
     Active Substance: ROSUVASTATIN CALCIUM
  3. OMEGA 3 [Suspect]
     Active Substance: OMEGA-3 FATTY ACIDS

REACTIONS (7)
  - Glycosylated haemoglobin increased [None]
  - Arthritis [None]
  - Liver disorder [None]
  - Condition aggravated [None]
  - Blood cholesterol increased [None]
  - Renal impairment [None]
  - Drug ineffective [None]
